FAERS Safety Report 9255492 (Version 2)
Quarter: 2013Q2

REPORT INFORMATION
  Report Type: Report from Study
  Country: CL (occurrence: CL)
  Receive Date: 20130425
  Receipt Date: 20130531
  Transmission Date: 20140414
  Serious: Yes (Hospitalization, Other)
  Sender: FDA-Public Use
  Company Number: PHHY2013CL040909

PATIENT
  Age: 71 Year
  Sex: Female

DRUGS (1)
  1. ACLASTA [Suspect]
     Indication: OSTEOPENIA
     Dosage: UNK UKN, YEARLY
     Route: 042
     Dates: start: 20120503

REACTIONS (4)
  - Tendon rupture [Recovering/Resolving]
  - Tendonitis [Recovering/Resolving]
  - Bursitis [Recovering/Resolving]
  - Ligament calcification [Recovering/Resolving]
